FAERS Safety Report 6066178-1 (Version None)
Quarter: 2009Q1

REPORT INFORMATION
  Report Type: 
  Country: None (occurrence: None)
  Receive Date: 20090205
  Receipt Date: 20090126
  Transmission Date: 20090719
  Serious: Yes (Hospitalization, Other)
  Sender: FDA-Public Use
  Company Number: PHHY2009FR02760

PATIENT
  Sex: Female

DRUGS (8)
  1. COTAREG [Suspect]
     Indication: HYPERTENSION
     Dosage: 160 MG, UNK
     Dates: start: 20070101
  2. METFORMINE ^MERCK^ [Suspect]
     Indication: TYPE 2 DIABETES MELLITUS
     Dosage: 500 MG, TID
     Route: 048
     Dates: start: 20050101, end: 20081030
  3. LERCAN [Suspect]
     Indication: HYPERTENSION
     Dosage: UNK
     Dates: start: 20081001
  4. KARDEGIC [Suspect]
     Indication: ARTERIOSCLEROSIS
     Dosage: 1 DF(75 MG), QD
     Route: 048
     Dates: end: 20081001
  5. KARDEGIC [Suspect]
     Indication: PROPHYLAXIS
  6. LOVENOX [Suspect]
     Indication: PERIPHLEBITIS
     Dosage: 0.4 ML ONE DOSE
     Route: 058
     Dates: start: 20081003, end: 20081010
  7. LOVENOX [Suspect]
     Indication: DEEP VEIN THROMBOSIS
     Dosage: 0.7 ML, TWICE DAILY
     Route: 058
     Dates: end: 20081017
  8. COUMADIN [Concomitant]
     Dosage: UNK
     Dates: start: 20081017

REACTIONS (12)
  - ANAEMIA HAEMOLYTIC AUTOIMMUNE [None]
  - ANAEMIA MACROCYTIC [None]
  - ASTHENIA [None]
  - DEEP VEIN THROMBOSIS [None]
  - HEADACHE [None]
  - LEUKOCYTOSIS [None]
  - LUNG DISORDER [None]
  - PYREXIA [None]
  - RETICULOCYTOSIS [None]
  - VOMITING [None]
  - WEIGHT DECREASED [None]
  - WHEEZING [None]
